FAERS Safety Report 9981231 (Version 1)
Quarter: 2014Q1

REPORT INFORMATION
  Report Type: Spontaneous
  Country: US (occurrence: None)
  Receive Date: 20140306
  Receipt Date: 20140306
  Transmission Date: 20141002
  Serious: Yes (Hospitalization, Other)
  Sender: FDA-Public Use
  Company Number: None

PATIENT
  Age: 60 Year
  Sex: Male
  Weight: 90.72 kg

DRUGS (2)
  1. TRAZADONE [Suspect]
     Indication: SLEEP DISORDER
     Dosage: 1 PER DAY TAKEN BY MOUTH
     Route: 048
     Dates: start: 20140105, end: 20140121
  2. TRAZADONE [Suspect]
     Indication: ANTIDEPRESSANT THERAPY
     Dosage: 1 PER DAY TAKEN BY MOUTH
     Route: 048
     Dates: start: 20140105, end: 20140121

REACTIONS (4)
  - Drug interaction [None]
  - Abnormal behaviour [None]
  - Psychotic disorder [None]
  - Cognitive disorder [None]
